FAERS Safety Report 8225350-2 (Version None)
Quarter: 2012Q1

REPORT INFORMATION
  Report Type: 
  Country: None (occurrence: None)
  Receive Date: 20120321
  Receipt Date: 20120315
  Transmission Date: 20120608
  Serious: Yes (Hospitalization)
  Sender: FDA-Public Use
  Company Number: FR-GLAXOSMITHKLINE-B0788727A

PATIENT
  Sex: Male

DRUGS (15)
  1. LATANOPROST [Concomitant]
     Dosage: 1UNIT PER DAY
     Route: 065
  2. AZARGA [Concomitant]
     Dosage: 1UNIT TWICE PER DAY
     Route: 065
  3. PAROXETINE HYDROCHLORIDE [Suspect]
     Indication: PRODUCT USED FOR UNKNOWN INDICATION
     Dosage: 20MG PER DAY
     Route: 048
     Dates: end: 20110918
  4. LERCANIDIPINE [Concomitant]
     Dosage: 1UNIT PER DAY
     Route: 065
  5. ZOCOR [Concomitant]
     Dosage: 1UNIT PER DAY
     Route: 065
  6. VITABACT [Concomitant]
     Route: 065
  7. INDAPAMIDE [Suspect]
     Indication: PRODUCT USED FOR UNKNOWN INDICATION
     Dosage: 1.5MG PER DAY
     Route: 048
     Dates: end: 20110918
  8. MEMANTINE [Concomitant]
     Dosage: 1UNIT PER DAY
     Route: 065
  9. TANGANIL [Concomitant]
     Dosage: 2UNIT TWICE PER DAY
     Route: 065
  10. SITAGLIPTIN [Concomitant]
     Dosage: 1UNIT PER DAY
     Route: 065
  11. LANSOPRAZOLE [Concomitant]
     Dosage: 1UNIT PER DAY
     Route: 065
  12. NITROGLYCERIN [Concomitant]
     Indication: PAIN
     Route: 065
  13. CALCIUM CARBONATE [Concomitant]
     Dosage: 1UNIT PER DAY
     Route: 065
  14. DOMPERIDONE [Concomitant]
     Route: 065
  15. PREVISCAN [Concomitant]
     Dosage: 1UNIT PER DAY
     Route: 065

REACTIONS (4)
  - HYPOKALAEMIA [None]
  - DRUG INTERACTION [None]
  - HYPONATRAEMIA [None]
  - CONFUSIONAL STATE [None]
